FAERS Safety Report 8773686 (Version 2)
Quarter: 2012Q4

REPORT INFORMATION
  Report Type: 
  Country: CN (occurrence: CN)
  Receive Date: 20120907
  Receipt Date: 20120920
  Transmission Date: 20130627
  Serious: Yes (Other)
  Sender: FDA-Public Use
  Company Number: CN-ASTRAZENECA-2012SE65378

PATIENT
  Age: 77 Year
  Sex: Female

DRUGS (2)
  1. NEXIUM [Suspect]
     Route: 048
     Dates: start: 20120825
  2. DRUGS FOR HYPERTENSION [Concomitant]
     Indication: HYPERTENSION
     Route: 048

REACTIONS (3)
  - Haematochezia [Recovering/Resolving]
  - Abdominal distension [Recovering/Resolving]
  - Diarrhoea [Not Recovered/Not Resolved]
